FAERS Safety Report 19007100 (Version 1)
Quarter: 2021Q1

REPORT INFORMATION
  Report Type: Spontaneous
  Country: US (occurrence: US)
  Receive Date: 20210313
  Receipt Date: 20210313
  Transmission Date: 20210420
  Serious: No
  Sender: FDA-Public Use
  Company Number: None

PATIENT
  Age: 88 Year
  Weight: 62.3 kg

DRUGS (1)
  1. RITUXAN [Suspect]
     Active Substance: RITUXIMAB
     Indication: WALDENSTROM^S MACROGLOBULINAEMIA
     Dosage: ?          OTHER FREQUENCY:EVERY 28 DAYS;?
     Route: 041
     Dates: start: 20201229

REACTIONS (4)
  - Burning sensation [None]
  - Infusion related reaction [None]
  - Oral discomfort [None]
  - Gingival discomfort [None]

NARRATIVE: CASE EVENT DATE: 20210126
